FAERS Safety Report 23640032 (Version 2)
Quarter: 2024Q2

REPORT INFORMATION
  Report Type: Spontaneous
  Country: US (occurrence: US)
  Receive Date: 20240317
  Receipt Date: 20240416
  Transmission Date: 20240716
  Serious: No
  Sender: FDA-Public Use
  Company Number: US-JNJFOC-20240343309

PATIENT
  Age: 81 Year
  Sex: Male

DRUGS (6)
  1. ERLEADA [Suspect]
     Active Substance: APALUTAMIDE
     Indication: Prostate cancer
     Route: 048
  2. TAMSULOSIN [Concomitant]
     Active Substance: TAMSULOSIN
     Dosage: ONGOING
     Dates: start: 20000215
  3. LIPITOR [Concomitant]
     Active Substance: ATORVASTATIN CALCIUM
     Dosage: ONGOING
     Dates: start: 19900101
  4. PROSCAR [Concomitant]
     Active Substance: FINASTERIDE
     Dosage: ONGOING
     Dates: start: 20220120
  5. VITAMIN D3 [Concomitant]
     Active Substance: CHOLECALCIFEROL
     Indication: Bone disorder
  6. ASPIRIN [Concomitant]
     Active Substance: ASPIRIN
     Dosage: LOW DOSE, ONGOING
     Dates: start: 19900101

REACTIONS (1)
  - Product dose omission issue [Unknown]

NARRATIVE: CASE EVENT DATE: 20240301
